FAERS Safety Report 8617064-1 (Version None)
Quarter: 2012Q3

REPORT INFORMATION
  Report Type: 
  Country: None (occurrence: None)
  Receive Date: 20120823
  Receipt Date: 20120814
  Transmission Date: 20120928
  Serious: No
  Sender: FDA-Public Use
  Company Number: US-009507513-1208USA007011

PATIENT

DRUGS (5)
  1. LISINOPRIL [Concomitant]
  2. SEROQUEL [Concomitant]
  3. PEG-INTRON [Suspect]
     Indication: HEPATITIS C
     Dosage: UNK
     Dates: start: 20120101
  4. TRAZODONE HCL [Concomitant]
  5. CLONAZEPAM [Concomitant]

REACTIONS (1)
  - INJECTION SITE ERYTHEMA [None]
